FAERS Safety Report 5938642-4 (Version None)
Quarter: 2008Q4

REPORT INFORMATION
  Report Type: 
  Country: None (occurrence: None)
  Receive Date: 20081103
  Receipt Date: 20081020
  Transmission Date: 20090506
  Serious: Yes (Death, Other)
  Sender: FDA-Public Use
  Company Number: IT-ROCHE-594288

PATIENT
  Age: 44 Year
  Sex: Male

DRUGS (10)
  1. PEG-INTERFERON ALFA 2A (RO 25-8310) [Suspect]
     Indication: HEPATITIS C
     Dosage: WEEKLY
     Route: 065
  2. SULFAMETHOXAZOLE AND TRIMETHOPRIM [Suspect]
     Route: 048
  3. RIBAVIRIN [Suspect]
     Indication: HEPATITIS C
     Route: 065
  4. ZIDOVUDINE [Suspect]
     Indication: HIV INFECTION
     Route: 065
  5. LAMIVUDINE [Suspect]
     Indication: HIV INFECTION
     Route: 065
  6. TENOFOVIR [Suspect]
     Indication: HIV INFECTION
     Route: 065
  7. CYCLOSPORINE [Suspect]
     Indication: PROPHYLAXIS
     Dosage: 200 + 200 MG
     Route: 065
  8. STEROID NOS [Suspect]
     Indication: PROPHYLAXIS
     Route: 065
  9. RAPAMYCIN [Suspect]
     Indication: PROPHYLAXIS
     Route: 065
  10. FLUCONAZOLE [Concomitant]
     Indication: ANTIFUNGAL PROPHYLAXIS

REACTIONS (4)
  - ASPERGILLOSIS [None]
  - HEPATITIS C [None]
  - HUMAN HERPESVIRUS 8 INFECTION [None]
  - KAPOSI'S SARCOMA [None]
